FAERS Safety Report 7266909-9 (Version None)
Quarter: 2011Q1

REPORT INFORMATION
  Report Type: 
  Country: None (occurrence: None)
  Receive Date: 20110201
  Receipt Date: 20110121
  Transmission Date: 20110831
  Serious: Yes (Hospitalization)
  Sender: FDA-Public Use
  Company Number: US-ELI_LILLY_AND_COMPANY-US201101005955

PATIENT
  Sex: Female

DRUGS (6)
  1. SIMVASTATIN [Concomitant]
  2. METFORMIN [Concomitant]
  3. ZYPREXA [Suspect]
     Dosage: 15 MG, DAILY (1/D)
     Dates: start: 20010911
  4. CELEXA [Concomitant]
  5. RISPERIDONE [Concomitant]
  6. ZYPREXA [Suspect]
     Indication: SCHIZOAFFECTIVE DISORDER
     Dates: start: 20061201

REACTIONS (6)
  - DELUSION [None]
  - INTENTIONAL DRUG MISUSE [None]
  - HALLUCINATION [None]
  - OFF LABEL USE [None]
  - THERAPY REGIMEN CHANGED [None]
  - MOOD SWINGS [None]
